FAERS Safety Report 11107207 (Version 1)
Quarter: 2015Q2

REPORT INFORMATION
  Report Type: Spontaneous
  Country: US (occurrence: None)
  Receive Date: 20150511
  Receipt Date: 20150511
  Transmission Date: 20150821
  Serious: No
  Sender: FDA-Public Use
  Company Number: None

PATIENT
  Age: 44 Year
  Sex: Female
  Weight: 78.93 kg

DRUGS (6)
  1. IBUPROFEN/ACETAMINOPHEN [Concomitant]
  2. NASAL DECONGESTANT [Concomitant]
     Active Substance: OXYMETAZOLINE HYDROCHLORIDE\PSEUDOEPHEDRINE HYDROCHLORIDE
  3. DELSYM COUGH MEDICINE [Concomitant]
  4. VICKS DAYQUIL [Concomitant]
     Active Substance: DEXTROMETHORPHAN HYDROBROMIDE\GUAIFENESIN
  5. FACIAL MOISTURIZER WITH SPF 15 CETAPHIL DAILY FACIAL MOISTURIZER LOT 118418 [Suspect]
     Active Substance: AVOBENZONE\OCTOCRYLENE
     Indication: PROPHYLAXIS AGAINST SOLAR RADIATION
  6. LEXAPRO [Concomitant]
     Active Substance: ESCITALOPRAM OXALATE

REACTIONS (1)
  - Urticaria [None]

NARRATIVE: CASE EVENT DATE: 20150502
